FAERS Safety Report 7119443-0 (Version None)
Quarter: 2010Q4

REPORT INFORMATION
  Report Type: 
  Country: None (occurrence: None)
  Receive Date: 20101123
  Receipt Date: 20101110
  Transmission Date: 20110411
  Serious: Yes (Hospitalization)
  Sender: FDA-Public Use
  Company Number: US-ACTELION-A-US2010-38786

PATIENT

DRUGS (15)
  1. BOSENTAN TABLET 125 MG US [Suspect]
     Indication: PULMONARY ARTERIAL HYPERTENSION
     Dosage: 125 MG, BID
     Route: 048
  2. BOSENTAN TABLET 125 MG US [Suspect]
     Dosage: 62.5 MG, BID
     Route: 048
     Dates: start: 20070319
  3. REVATIO [Concomitant]
  4. METOPROLOL [Concomitant]
  5. LISINOPRIL [Concomitant]
  6. SINEMET [Concomitant]
  7. COMTAN [Concomitant]
  8. LASIX [Concomitant]
  9. FOLIC ACID [Concomitant]
  10. VITAMINS [Concomitant]
  11. ZOLOFT [Concomitant]
  12. SIMVASTATIN [Concomitant]
  13. LUNESTA [Concomitant]
  14. ASPIRIN [Concomitant]
  15. POTASSIUM CHLORIDE [Concomitant]

REACTIONS (11)
  - BRONCHIAL SECRETION RETENTION [None]
  - DILATATION ATRIAL [None]
  - ENDOTRACHEAL INTUBATION [None]
  - FALL [None]
  - HEART RATE INCREASED [None]
  - MENTAL STATUS CHANGES [None]
  - MITRAL VALVE INCOMPETENCE [None]
  - PCO2 INCREASED [None]
  - PNEUMONIA ASPIRATION [None]
  - RESPIRATORY FAILURE [None]
  - RIGHT VENTRICULAR HYPERTROPHY [None]
